FAERS Safety Report 4737075-6 (Version None)
Quarter: 2005Q3

REPORT INFORMATION
  Report Type: 
  Country: None (occurrence: None)
  Receive Date: 20050804
  Receipt Date: 20050704
  Transmission Date: 20060218
  Serious: Yes (Other)
  Sender: FDA-Public Use
  Company Number: ENTC2005-0191

PATIENT
  Age: 71 Year
  Sex: Male

DRUGS (3)
  1. STALEVO 100 [Suspect]
     Indication: PARKINSON'S DISEASE
     Dosage: 100 MG Q8H ORAL
     Route: 048
     Dates: start: 20050625, end: 20050625
  2. VITAMIN B COMPLEX WITH C [Concomitant]
  3. SELEGILINE HCL [Concomitant]

REACTIONS (4)
  - BALANCE DISORDER [None]
  - DRUG EFFECT DECREASED [None]
  - PARALYSIS [None]
  - TREMOR [None]
